FAERS Safety Report 14995369 (Version 1)
Quarter: 2018Q2

REPORT INFORMATION
  Report Type: Spontaneous
  Country: GB (occurrence: PL)
  Receive Date: 20180611
  Receipt Date: 20180611
  Transmission Date: 20180711
  Serious: Yes (Death, Hospitalization, Other)
  Sender: FDA-Public Use
  Company Number: PL-FRESENIUS KABI-FK201806469

PATIENT
  Sex: Female

DRUGS (3)
  1. CARBOPLATIN. [Suspect]
     Active Substance: CARBOPLATIN
     Indication: OVARIAN CANCER
     Route: 065
     Dates: start: 2016
  2. PACLITAXEL (MANUFACTURER UNKNOWN) [Suspect]
     Active Substance: PACLITAXEL
     Indication: OVARIAN CANCER
     Route: 065
     Dates: start: 2016
  3. AVASTIN [Suspect]
     Active Substance: BEVACIZUMAB
     Indication: OVARIAN CANCER
     Route: 065
     Dates: start: 2016

REACTIONS (10)
  - Death [Fatal]
  - Pelvic abscess [Unknown]
  - General physical health deterioration [Unknown]
  - Disease progression [Unknown]
  - Impaired healing [Recovered/Resolved]
  - Colon cancer [Unknown]
  - Ill-defined disorder [Unknown]
  - Large intestine perforation [Unknown]
  - Wound infection bacterial [Recovered/Resolved]
  - Wound infection pseudomonas [Recovered/Resolved]

NARRATIVE: CASE EVENT DATE: 2016
